FAERS Safety Report 8445166-1 (Version None)
Quarter: 2012Q2

REPORT INFORMATION
  Report Type: 
  Country: None (occurrence: None)
  Receive Date: 20120618
  Receipt Date: 20120613
  Transmission Date: 20120825
  Serious: Yes (Other)
  Sender: FDA-Public Use
  Company Number: US-ROCHE-714139

PATIENT
  Sex: Female
  Weight: 63.5 kg

DRUGS (15)
  1. ACTEMRA [Suspect]
     Route: 042
  2. ACTEMRA [Suspect]
     Route: 042
  3. COUMADIN [Concomitant]
     Dosage: DOSE: 10 MG ON THURSAY AND SUNDAY. 7.5 MG ON MON, TUE, WED, FRI AND SAT.
  4. FOLIC ACID [Concomitant]
     Route: 048
  5. LOVASTATIN [Concomitant]
  6. ASPIRIN [Concomitant]
     Route: 048
  7. ACTEMRA [Suspect]
     Route: 042
  8. METHOTREXATE [Concomitant]
  9. LISINOPRIL [Concomitant]
  10. ACTEMRA [Suspect]
     Dosage: PATIENT WAS ENROLLED IN STUDY WA18062 IN PAST
     Route: 042
  11. ACTEMRA [Suspect]
     Indication: RHEUMATOID ARTHRITIS
     Dosage: FORM: INFUSION; DOSE UNIT: MG/KG;
     Route: 042
     Dates: start: 20070215, end: 20100603
  12. METFORMIN HCL [Concomitant]
     Route: 048
  13. LANOXIN [Concomitant]
     Route: 048
  14. ACTEMRA [Suspect]
     Route: 042
  15. HYDROCHLOROTHIAZIDE [Concomitant]
     Route: 048

REACTIONS (1)
  - CEREBRAL INFARCTION [None]
